FAERS Safety Report 8313940-8 (Version None)
Quarter: 2012Q2

REPORT INFORMATION
  Report Type: 
  Country: None (occurrence: None)
  Receive Date: 20120426
  Receipt Date: 20120426
  Transmission Date: 20120825
  Serious: Yes (Life-Threatening, Hospitalization, Disabling, Congenital Anomaly, Other)
  Sender: FDA-Public Use
  Company Number: None

PATIENT
  Age: 56 Year
  Sex: Female
  Weight: 64.41 kg

DRUGS (2)
  1. CLOZAPINE [Suspect]
     Indication: BIPOLAR DISORDER
     Dosage: 100MG TABLET
     Route: 048
     Dates: start: 20120331, end: 20120423
  2. CLOZAPINE [Concomitant]

REACTIONS (17)
  - MUSCULOSKELETAL PAIN [None]
  - IMPAIRED DRIVING ABILITY [None]
  - DISTURBANCE IN ATTENTION [None]
  - THINKING ABNORMAL [None]
  - NECK PAIN [None]
  - JOINT SWELLING [None]
  - SWELLING FACE [None]
  - HEADACHE [None]
  - PRODUCT SUBSTITUTION ISSUE [None]
  - ABASIA [None]
  - PAIN [None]
  - AMNESIA [None]
  - ALCOHOL POISONING [None]
  - PAIN IN EXTREMITY [None]
  - PRODUCT QUALITY ISSUE [None]
  - ERYTHEMA [None]
  - EUPHORIC MOOD [None]
